FAERS Safety Report 22135973 (Version 2)
Quarter: 2023Q1

REPORT INFORMATION
  Report Type: Spontaneous
  Country: US (occurrence: US)
  Receive Date: 20230324
  Receipt Date: 20230328
  Transmission Date: 20230418
  Serious: No
  Sender: FDA-Public Use
  Company Number: US-SA-SAC20230322000986

PATIENT
  Sex: Female

DRUGS (1)
  1. KEVZARA [Suspect]
     Active Substance: SARILUMAB
     Indication: Peripheral venous disease
     Dosage: 150 MG, QOW
     Route: 058
     Dates: end: 20230311

REACTIONS (2)
  - Product use in unapproved indication [Unknown]
  - Product temperature excursion issue [Unknown]
